FAERS Safety Report 5967628-9 (Version None)
Quarter: 2008Q4

REPORT INFORMATION
  Report Type: 
  Country: None (occurrence: None)
  Receive Date: 20081126
  Receipt Date: 20081117
  Transmission Date: 20090506
  Serious: Yes (Other)
  Sender: FDA-Public Use
  Company Number: PHHY2008CA28885

PATIENT

DRUGS (1)
  1. DIOVAN [Suspect]

REACTIONS (1)
  - CEREBROVASCULAR ACCIDENT [None]
